FAERS Safety Report 7945865-1 (Version None)
Quarter: 2011Q4

REPORT INFORMATION
  Report Type: 
  Country: None (occurrence: None)
  Receive Date: 20111129
  Receipt Date: 20111118
  Transmission Date: 20120403
  Serious: Yes (Hospitalization, Other)
  Sender: FDA-Public Use
  Company Number: PHFR2010GB05099

PATIENT
  Sex: Female

DRUGS (2)
  1. ARIPIPRAZOLE [Concomitant]
  2. CLOZARIL [Suspect]
     Indication: SCHIZOPHRENIA
     Dosage: 275 MG, QD
     Route: 048
     Dates: start: 20100825

REACTIONS (3)
  - CARDIAC DISORDER [None]
  - MENTAL DISORDER [None]
  - HEART RATE INCREASED [None]
